FAERS Safety Report 22147727 (Version 1)
Quarter: 2023Q1

REPORT INFORMATION
  Report Type: Spontaneous
  Country: US (occurrence: None)
  Receive Date: 20230328
  Receipt Date: 20230328
  Transmission Date: 20230417
  Serious: Yes (Hospitalization)
  Sender: FDA-Public Use
  Company Number: None

PATIENT
  Age: 69 Year
  Sex: Female
  Weight: 109.3 kg

DRUGS (2)
  1. EPCLUSA [Suspect]
     Active Substance: SOFOSBUVIR\VELPATASVIR
     Indication: Hepatitis C
     Dosage: FREQUENCY : DAILY;?
     Route: 048
     Dates: start: 20230216, end: 20230322
  2. AMIODARONE [Suspect]
     Active Substance: AMIODARONE
     Dates: start: 20230216, end: 20230322

REACTIONS (2)
  - Bradycardia [None]
  - Drug interaction [None]

NARRATIVE: CASE EVENT DATE: 20230322
